FAERS Safety Report 6635937-6 (Version None)
Quarter: 2010Q1

REPORT INFORMATION
  Report Type: 
  Country: None (occurrence: None)
  Receive Date: 20100316
  Receipt Date: 20100308
  Transmission Date: 20100710
  Serious: Yes (Hospitalization, Other)
  Sender: FDA-Public Use
  Company Number: PL-BRISTOL-MYERS SQUIBB COMPANY-14985246

PATIENT
  Age: 50 Year
  Sex: Male
  Weight: 61 kg

DRUGS (4)
  1. PACLITAXEL [Suspect]
     Indication: NON-SMALL CELL LUNG CANCER
     Route: 042
     Dates: start: 20090401, end: 20090401
  2. CARBOPLATIN [Suspect]
     Indication: NON-SMALL CELL LUNG CANCER
     Route: 042
     Dates: start: 20090401, end: 20090401
  3. ONDANSETRON [Concomitant]
     Indication: ANTIEMETIC SUPPORTIVE CARE
     Dates: start: 20090402, end: 20090405
  4. NEUPOGEN [Concomitant]
     Indication: NEUTROPENIA
     Dates: start: 20090402, end: 20090405

REACTIONS (1)
  - RESPIRATORY FAILURE [None]
